FAERS Safety Report 21396613 (Version 1)
Quarter: 2022Q3

REPORT INFORMATION
  Report Type: Report from Study
  Country: BR (occurrence: BR)
  Receive Date: 20220930
  Receipt Date: 20220930
  Transmission Date: 20221027
  Serious: Yes (Other)
  Sender: FDA-Public Use
  Company Number: BR-JNJFOC-20220806104

PATIENT
  Age: 35 Year
  Sex: Female
  Weight: 95 kg

DRUGS (5)
  1. INFLIXIMAB [Suspect]
     Active Substance: INFLIXIMAB
     Indication: Psoriatic arthropathy
     Route: 041
     Dates: start: 20220309
  2. REMICADE [Suspect]
     Active Substance: INFLIXIMAB
     Indication: Psoriatic arthropathy
     Route: 041
     Dates: start: 20220309
  3. GLYBURIDE [Concomitant]
     Active Substance: GLYBURIDE
  4. METFORMIN [Concomitant]
     Active Substance: METFORMIN HYDROCHLORIDE
  5. GLYBURIDE [Concomitant]
     Active Substance: GLYBURIDE

REACTIONS (10)
  - Monoplegia [Unknown]
  - Psoriatic arthropathy [Unknown]
  - Hypoaesthesia [Recovering/Resolving]
  - Bedridden [Unknown]
  - Mouth ulceration [Unknown]
  - Blister [Unknown]
  - Decreased appetite [Unknown]
  - Peripheral swelling [Unknown]
  - Influenza [Recovered/Resolved]
  - Therapeutic product effect decreased [Unknown]

NARRATIVE: CASE EVENT DATE: 20220101
